FAERS Safety Report 7493913-8 (Version None)
Quarter: 2011Q2

REPORT INFORMATION
  Report Type: 
  Country: None (occurrence: None)
  Receive Date: 20110513
  Receipt Date: 20110428
  Transmission Date: 20111010
  Serious: Yes (Other)
  Sender: FDA-Public Use
  Company Number: AUR-APL-2011-01575

PATIENT
  Age: 85 Year
  Sex: Female

DRUGS (7)
  1. RAMIPRIL [Concomitant]
  2. MELOXICAM [Suspect]
     Indication: OSTEOARTHRITIS
  3. MELOXICAM [Suspect]
     Indication: ARTHRALGIA
  4. ASPIRIN [Concomitant]
  5. BENDROFLUMETHIAZIDE [Concomitant]
  6. OMEPRAZOLE [Suspect]
     Indication: OSTEOARTHRITIS
  7. ISOSORBIDE MONONITRATE [Concomitant]

REACTIONS (2)
  - LUPUS-LIKE SYNDROME [None]
  - EXFOLIATIVE RASH [None]
